FAERS Safety Report 7639760-5 (Version None)
Quarter: 2011Q3

REPORT INFORMATION
  Report Type: 
  Country: None (occurrence: None)
  Receive Date: 20110727
  Receipt Date: 20110722
  Transmission Date: 20111222
  Serious: Yes (Other)
  Sender: FDA-Public Use
  Company Number: JP-SANOFI-AVENTIS-2011SA047014

PATIENT
  Age: 67 Year
  Sex: Male
  Weight: 58 kg

DRUGS (6)
  1. LANTUS [Suspect]
     Indication: TYPE 1 DIABETES MELLITUS
     Route: 058
     Dates: start: 20100401, end: 20110615
  2. INSULIN HUMAN [Suspect]
     Indication: TYPE 1 DIABETES MELLITUS
     Route: 058
     Dates: start: 20110616
  3. LANTUS [Suspect]
     Route: 058
     Dates: start: 20110601
  4. HUMALOG [Suspect]
     Indication: TYPE 1 DIABETES MELLITUS
     Route: 058
     Dates: start: 20100401
  5. SOLOSTAR [Suspect]
     Dates: start: 20110601
  6. SOLOSTAR [Suspect]
     Dates: start: 20100401, end: 20110615

REACTIONS (2)
  - DIABETIC KETOACIDOSIS [None]
  - HYPERGLYCAEMIA [None]
